FAERS Safety Report 20476573 (Version 1)
Quarter: 2022Q1

REPORT INFORMATION
  Report Type: Spontaneous
  Country: US (occurrence: US)
  Receive Date: 20220215
  Receipt Date: 20220215
  Transmission Date: 20220423
  Serious: No
  Sender: FDA-Public Use
  Company Number: US-TRIS PHARMA, INC.-22US010062

PATIENT

DRUGS (4)
  1. QUILLICHEW ER [Suspect]
     Active Substance: METHYLPHENIDATE HYDROCHLORIDE
     Indication: Attention deficit hyperactivity disorder
     Dosage: UNK
  2. DYANAVEL XR [Suspect]
     Active Substance: AMPHETAMINE
     Indication: Attention deficit hyperactivity disorder
     Dosage: 5 MILLILITRE, QD
  3. DYANAVEL XR [Suspect]
     Active Substance: AMPHETAMINE
     Dosage: 2.5 MILLILITRE, QD
  4. DYANAVEL XR [Suspect]
     Active Substance: AMPHETAMINE
     Dosage: UNK
     Dates: start: 2018

REACTIONS (3)
  - Scoliosis [Not Recovered/Not Resolved]
  - Product dose omission issue [Unknown]
  - Drug ineffective [Unknown]
